FAERS Safety Report 7592533-4 (Version None)
Quarter: 2011Q3

REPORT INFORMATION
  Report Type: 
  Country: None (occurrence: None)
  Receive Date: 20110706
  Receipt Date: 20110629
  Transmission Date: 20111222
  Serious: Yes (Hospitalization)
  Sender: FDA-Public Use
  Company Number: AT-EISAI INC-E7389-01225-CLI-AT

PATIENT
  Sex: Male
  Weight: 67 kg

DRUGS (15)
  1. CARBOPLATIN [Concomitant]
     Route: 041
     Dates: start: 20110414, end: 20110421
  2. LASIX [Concomitant]
     Route: 048
     Dates: start: 20110413, end: 20110417
  3. RAMIPRIL HCT [Concomitant]
     Route: 048
     Dates: start: 20110413
  4. DANCOR [Concomitant]
     Route: 048
  5. CARBOPLATIN [Concomitant]
     Indication: NON-SMALL CELL LUNG CANCER
     Dosage: DOSE REDUCED
     Route: 041
     Dates: start: 20110414, end: 20110421
  6. ZOLPIDEM TARTRATE [Concomitant]
     Indication: SLEEP DISORDER
     Route: 048
     Dates: start: 20110411
  7. ASPIRIN [Concomitant]
     Indication: THROMBOSIS PROPHYLAXIS
     Route: 048
     Dates: start: 20110419
  8. FRAGMIN [Concomitant]
     Indication: THROMBOSIS PROPHYLAXIS
     Dosage: 5000 IE
     Route: 058
     Dates: start: 20110405
  9. SIMVASTAD [Concomitant]
     Route: 048
     Dates: start: 20110423
  10. EPIRUBICIN HYDROCHLORIDE [Suspect]
     Indication: NON-SMALL CELL LUNG CANCER
     Dosage: DOSE REDUCED
     Route: 041
     Dates: start: 20110414, end: 20110421
  11. EPIRUBICIN HYDROCHLORIDE [Suspect]
     Route: 041
     Dates: start: 20110414, end: 20110421
  12. NEXIUM [Concomitant]
     Route: 048
     Dates: start: 20110408
  13. BISOPROLOL FUMARATE [Concomitant]
     Route: 048
     Dates: start: 20110420
  14. LASIX [Concomitant]
     Route: 041
     Dates: start: 20110417, end: 20110419
  15. VOLTAREN [Concomitant]
     Indication: PAIN PROPHYLAXIS
     Route: 048
     Dates: start: 20110408

REACTIONS (3)
  - FEMORAL NECK FRACTURE [None]
  - DYSPNOEA [None]
  - CORONARY ARTERY DISEASE [None]
